FAERS Safety Report 8340900-3 (Version None)
Quarter: 2012Q2

REPORT INFORMATION
  Report Type: 
  Country: None (occurrence: None)
  Receive Date: 20120507
  Receipt Date: 20120430
  Transmission Date: 20120825
  Serious: Yes (Other)
  Sender: FDA-Public Use
  Company Number: PHHY2012CA026171

PATIENT
  Sex: Female

DRUGS (9)
  1. CALCIUM W/MAGNESIUM [Concomitant]
  2. FLEXERIL [Concomitant]
     Dosage: 10 MG, UNK
  3. ZOLEDRONOC ACID [Suspect]
     Dosage: 5 MG, UNK
     Route: 042
     Dates: start: 20110322
  4. VENLAFAXINE [Concomitant]
     Dosage: 150 MG, UNK
  5. ZOLEDRONOC ACID [Suspect]
     Indication: OSTEOPOROSIS
     Dosage: 5 MG, UNK
     Route: 042
     Dates: start: 20090327
  6. ZOLEDRONOC ACID [Suspect]
     Dosage: 5 MG, UNK
     Route: 042
     Dates: start: 20100325
  7. VITAMIN D [Concomitant]
  8. SYNTHROID [Concomitant]
  9. ZOLEDRONOC ACID [Suspect]
     Dosage: 5 MG, UNK
     Route: 042
     Dates: start: 20120429

REACTIONS (1)
  - PNEUMONIA [None]
